FAERS Safety Report 8240015-9 (Version None)
Quarter: 2012Q1

REPORT INFORMATION
  Report Type: 
  Country: None (occurrence: None)
  Receive Date: 20120328
  Receipt Date: 20120327
  Transmission Date: 20120608
  Serious: No
  Sender: FDA-Public Use
  Company Number: US-PFIZER INC-2012062554

PATIENT
  Sex: Male
  Weight: 70.8 kg

DRUGS (3)
  1. CHANTIX [Suspect]
     Dosage: UNK
     Dates: start: 20120201
  2. CHANTIX [Suspect]
     Indication: SMOKING CESSATION THERAPY
     Dosage: 0.5 MG, DAILY
     Dates: start: 20120214, end: 20120201
  3. COMBIVENT [Concomitant]
     Indication: GLAUCOMA
     Dosage: UNK

REACTIONS (1)
  - ABNORMAL DREAMS [None]
